FAERS Safety Report 5917965-9 (Version None)
Quarter: 2008Q4

REPORT INFORMATION
  Report Type: 
  Country: None (occurrence: None)
  Receive Date: 20081014
  Receipt Date: 20081003
  Transmission Date: 20090506
  Serious: Yes (Death)
  Sender: FDA-Public Use
  Company Number: JP-PFIZER INC-2008065648

PATIENT
  Sex: Male
  Weight: 42 kg

DRUGS (10)
  1. SU-011,248 [Suspect]
     Indication: RENAL CELL CARCINOMA
     Route: 048
     Dates: start: 20080617, end: 20080730
  2. FERROMIA [Concomitant]
     Route: 048
  3. CIMETIDINE [Concomitant]
     Route: 048
  4. SENNOSIDES [Concomitant]
     Route: 048
  5. MORPHINE HCL ELIXIR [Concomitant]
     Route: 048
  6. FENTANYL [Concomitant]
     Route: 062
  7. AMLODIN [Concomitant]
     Route: 048
     Dates: start: 20080624
  8. BLOPRESS [Concomitant]
     Route: 048
     Dates: start: 20080627, end: 20080714
  9. OLMETEC [Concomitant]
     Route: 048
     Dates: start: 20080714
  10. METILON [Concomitant]
     Dates: start: 20080718, end: 20080726

REACTIONS (1)
  - INTERSTITIAL LUNG DISEASE [None]
